FAERS Safety Report 15346924 (Version 2)
Quarter: 2018Q3

REPORT INFORMATION
  Report Type: Report from Study
  Country: CO (occurrence: CO)
  Receive Date: 20180904
  Receipt Date: 20180910
  Transmission Date: 20181010
  Serious: Yes (Hospitalization)
  Sender: FDA-Public Use
  Company Number: PHHO2018CO009782

PATIENT
  Age: 58 Year
  Sex: Female
  Weight: 76.8 kg

DRUGS (2)
  1. COMPARATOR FULVESTRANT [Suspect]
     Active Substance: FULVESTRANT
     Indication: BREAST CANCER
     Dosage: 500 MG, QMO
     Route: 030
     Dates: start: 20160528, end: 20180816
  2. LEE011 [Suspect]
     Active Substance: RIBOCICLIB
     Indication: BREAST CANCER
     Dosage: 200 MG, QD
     Route: 048
     Dates: start: 20160528, end: 20180830

REACTIONS (1)
  - Disease progression [Recovering/Resolving]

NARRATIVE: CASE EVENT DATE: 20180824
